FAERS Safety Report 15080103 (Version 4)
Quarter: 2018Q3

REPORT INFORMATION
  Report Type: Spontaneous
  Country: JP (occurrence: JP)
  Receive Date: 20180627
  Receipt Date: 20180920
  Transmission Date: 20181010
  Serious: Yes (Hospitalization, Other)
  Sender: FDA-Public Use
  Company Number: PHJP2018JP013059

PATIENT
  Age: 41 Year
  Sex: Female

DRUGS (4)
  1. FOLIC ACID. [Suspect]
     Active Substance: FOLIC ACID
     Indication: ANAEMIA MEGALOBLASTIC
     Dosage: UNK
     Route: 048
  2. CARBAMAZEPINE. [Suspect]
     Active Substance: CARBAMAZEPINE
     Indication: EPILEPSY
     Dosage: UNK
     Route: 048
  3. CLONAZEPAM. [Suspect]
     Active Substance: CLONAZEPAM
     Indication: EPILEPSY
     Dosage: UNK
     Route: 065
  4. VITAMIN B12 [Suspect]
     Active Substance: CYANOCOBALAMIN
     Indication: ANAEMIA MEGALOBLASTIC
     Dosage: UNK
     Route: 030

REACTIONS (8)
  - Normal newborn [Unknown]
  - Folate deficiency [Unknown]
  - Blood lactate dehydrogenase increased [Unknown]
  - Myositis [Unknown]
  - Anaemia megaloblastic [Recovering/Resolving]
  - Megaloblasts increased [Unknown]
  - Platelet count decreased [Unknown]
  - Maternal exposure during pregnancy [Unknown]
